FAERS Safety Report 16586136 (Version 1)
Quarter: 2019Q3

REPORT INFORMATION
  Report Type: Spontaneous
  Country: US (occurrence: US)
  Receive Date: 20190717
  Receipt Date: 20190717
  Transmission Date: 20191004
  Serious: No
  Sender: FDA-Public Use
  Company Number: US-HORIZON-PEN-0652-2019

PATIENT
  Age: 51 Year
  Sex: Female

DRUGS (1)
  1. PENNSAID [Suspect]
     Active Substance: DICLOFENAC SODIUM
     Indication: JOINT SWELLING
     Dates: start: 20190705, end: 20190706

REACTIONS (4)
  - Swelling [Recovered/Resolved]
  - Pain [Recovered/Resolved]
  - Off label use [Recovered/Resolved]
  - Burning sensation [Recovered/Resolved]

NARRATIVE: CASE EVENT DATE: 20190705
